FAERS Safety Report 19407466 (Version 1)
Quarter: 2021Q2

REPORT INFORMATION
  Report Type: Spontaneous
  Country: US (occurrence: US)
  Receive Date: 20210612
  Receipt Date: 20210612
  Transmission Date: 20210717
  Serious: No
  Sender: FDA-Public Use
  Company Number: US-009507513-2106USA001248

PATIENT
  Age: 36 Year
  Sex: Male

DRUGS (3)
  1. INVANZ [Suspect]
     Active Substance: ERTAPENEM SODIUM
     Indication: INFECTIVE AORTITIS
     Dosage: 1 GRAM DAILY
     Route: 042
  2. ABACAVIR;DOLUTEGRAVIR;LAMIVUDINE [Concomitant]
     Active Substance: ABACAVIR SULFATE\DOLUTEGRAVIR SODIUM\LAMIVUDINE
     Indication: HIV INFECTION
     Dosage: UNK
  3. INVANZ [Suspect]
     Active Substance: ERTAPENEM SODIUM
     Indication: CAMPYLOBACTER INFECTION

REACTIONS (2)
  - No adverse event [Unknown]
  - Off label use [Unknown]
